FAERS Safety Report 9650080 (Version 1)
Quarter: 2013Q4

REPORT INFORMATION
  Report Type: Spontaneous
  Country: US (occurrence: US)
  Receive Date: 20131028
  Receipt Date: 20131028
  Transmission Date: 20140711
  Serious: No
  Sender: FDA-Public Use
  Company Number: US-PURDUE-USA-2012-0096750

PATIENT
  Sex: Male

DRUGS (7)
  1. OXYCONTIN (NDA 22-272) [Suspect]
     Indication: BACK PAIN
     Dosage: 120 MG, DAILY
     Route: 048
  2. OXYCONTIN (NDA 22-272) [Suspect]
     Indication: PAIN IN EXTREMITY
     Dosage: 80 MG, DAILY
     Route: 048
  3. LISINOPRIL                         /00894002/ [Concomitant]
     Indication: HYPERTENSION
     Dosage: 20 MG, DAILY
     Route: 048
  4. LEXAPRO [Concomitant]
     Indication: ANXIETY
     Dosage: 10 MG, DAILY
     Route: 048
  5. PROVIGIL [Concomitant]
     Indication: ATTENTION DEFICIT/HYPERACTIVITY DISORDER
     Dosage: 100 MG, BID
     Route: 048
  6. ASA [Concomitant]
     Indication: PROPHYLAXIS
     Dosage: 81 MG, DAILY
     Route: 048
  7. VOLTAREN                           /00372301/ [Concomitant]
     Indication: ARTHRALGIA
     Dosage: 75 MG, BID
     Route: 048

REACTIONS (2)
  - Nausea [Not Recovered/Not Resolved]
  - Drug effect decreased [Not Recovered/Not Resolved]
